FAERS Safety Report 5302374-6 (Version None)
Quarter: 2007Q2

REPORT INFORMATION
  Report Type: 
  Country: None (occurrence: None)
  Receive Date: 20070419
  Receipt Date: 20070411
  Transmission Date: 20071010
  Serious: No
  Sender: FDA-Public Use
  Company Number: US-BAXTER-2007BH003519

PATIENT
  Sex: Male

DRUGS (1)
  1. ADVATE [Suspect]
     Indication: HAEMOPHILIA
     Dosage: DOSE UNIT:UNKNOWN

REACTIONS (2)
  - LOSS OF CONSCIOUSNESS [None]
  - ROAD TRAFFIC ACCIDENT [None]
